FAERS Safety Report 23748669 (Version 1)
Quarter: 2024Q2

REPORT INFORMATION
  Report Type: Spontaneous
  Country: CZ (occurrence: CZ)
  Receive Date: 20240416
  Receipt Date: 20240416
  Transmission Date: 20240716
  Serious: Yes (Other)
  Sender: FDA-Public Use
  Company Number: CZ-EMA-DD-20230227-7182781-121258

PATIENT
  Age: 58 Year
  Sex: Male

DRUGS (5)
  1. ADALIMUMAB [Suspect]
     Active Substance: ADALIMUMAB\ISOPROPYL ALCOHOL
     Indication: Psoriatic arthropathy
     Dosage: UNK
     Route: 065
     Dates: start: 201909, end: 202010
  2. METHOTREXATE [Suspect]
     Active Substance: METHOTREXATE
     Indication: Psoriatic arthropathy
     Dosage: 15 MG
     Route: 065
     Dates: start: 2018
  3. METHOTREXATE [Suspect]
     Active Substance: METHOTREXATE
     Indication: Psoriatic arthropathy
     Dosage: 15 MG, QW
     Route: 065
     Dates: end: 201909
  4. METHOTREXATE [Suspect]
     Active Substance: METHOTREXATE
     Dosage: UNK (REDUCED DOSE)
     Route: 065
     Dates: start: 201909
  5. NIMESULIDE [Suspect]
     Active Substance: NIMESULIDE
     Indication: Psoriatic arthropathy
     Dosage: 100 MILLIGRAM, QD, AS NEEDED
     Route: 065

REACTIONS (8)
  - Psoriatic arthropathy [Unknown]
  - Polyarthritis [Recovered/Resolved]
  - Arthropathy [Recovered/Resolved]
  - C-reactive protein increased [Recovered/Resolved]
  - Liver disorder [Recovering/Resolving]
  - Psoriasis [Recovered/Resolved]
  - Red blood cell abnormality [Unknown]
  - Dactylitis [Recovered/Resolved]

NARRATIVE: CASE EVENT DATE: 20190101
